FAERS Safety Report 15892627 (Version 1)
Quarter: 2019Q1

REPORT INFORMATION
  Report Type: Report from Study
  Country: US (occurrence: US)
  Receive Date: 20190130
  Receipt Date: 20190130
  Transmission Date: 20190417
  Serious: No
  Sender: FDA-Public Use
  Company Number: US-EXELIXIS-CABO-18017125

PATIENT
  Age: 64 Year
  Sex: Male

DRUGS (2)
  1. ONDANSETRON [Concomitant]
     Active Substance: ONDANSETRON
     Dosage: UNK
  2. CABOMETYX [Suspect]
     Active Substance: CABOZANTINIB S-MALATE
     Indication: RENAL CANCER
     Dosage: 60 MG, QD
     Route: 048
     Dates: start: 20181025

REACTIONS (4)
  - Abdominal discomfort [Unknown]
  - Constipation [Recovered/Resolved]
  - Stomatitis [Unknown]
  - Dysphagia [Unknown]

NARRATIVE: CASE EVENT DATE: 2018
